FAERS Safety Report 8356928-3 (Version None)
Quarter: 2012Q2

REPORT INFORMATION
  Report Type: 
  Country: None (occurrence: None)
  Receive Date: 20120514
  Receipt Date: 20120504
  Transmission Date: 20120825
  Serious: Yes (Death, Hospitalization, Disabling, Other)
  Sender: FDA-Public Use
  Company Number: GB-PFIZER INC-2011035206

PATIENT
  Age: 51 Year
  Sex: Female
  Weight: 50 kg

DRUGS (8)
  1. NOREPINEPHRINE BITARTRATE [Concomitant]
     Dosage: 0.9 MCG/KG/MIN
  2. MIDAZOLAM [Concomitant]
  3. NOREPINEPHRINE BITARTRATE [Concomitant]
     Indication: BLOOD PRESSURE DECREASED
     Dosage: 0.6 MCG/KG/MIN
     Route: 042
  4. MORPHINE [Concomitant]
  5. RITUXIMAB [Suspect]
     Indication: B-CELL LYMPHOMA
     Dosage: UNK
     Dates: start: 20100601, end: 20101201
  6. BENDAMUSTINE HYDROCHLORIDE [Suspect]
     Indication: B-CELL LYMPHOMA
     Dosage: UNK
     Dates: start: 20100601, end: 20101201
  7. SILDENAFIL [Suspect]
     Indication: PULMONARY ARTERIAL HYPERTENSION
     Dosage: 10 MG, 3X/DAY
     Route: 042
     Dates: start: 20110211, end: 20110214
  8. SILDENAFIL [Suspect]
     Indication: PULMONARY FIBROSIS

REACTIONS (3)
  - HYPOTENSION [None]
  - PULMONARY HYPERTENSION [None]
  - PULMONARY FIBROSIS [None]
